FAERS Safety Report 14096803 (Version 2)
Quarter: 2017Q4

REPORT INFORMATION
  Report Type: Spontaneous
  Country: US (occurrence: US)
  Receive Date: 20171017
  Receipt Date: 20171103
  Transmission Date: 20180321
  Serious: No
  Sender: FDA-Public Use
  Company Number: US-PFIZER INC-2017443528

PATIENT
  Age: 61 Year
  Sex: Female
  Weight: 72.12 kg

DRUGS (5)
  1. XGEVA [Concomitant]
     Active Substance: DENOSUMAB
     Indication: BONE DISORDER
     Dosage: INJECTIONS QUARTERLY
     Dates: start: 201402
  2. FASLODEX [Suspect]
     Active Substance: FULVESTRANT
     Dosage: GETTING ONCE A MONTH
  3. IBRANCE [Suspect]
     Active Substance: PALBOCICLIB
     Indication: BREAST CANCER METASTATIC
     Dosage: 125MG ONCE A DAY 21 DAY ON AND 7 DAYS OFF
     Dates: start: 201601, end: 20170928
  4. FASLODEX [Suspect]
     Active Substance: FULVESTRANT
     Dosage: UNK, MONTHLY, (INJECTIONS MONTHLY)
     Dates: start: 201601, end: 201709
  5. FASLODEX [Suspect]
     Active Substance: FULVESTRANT
     Indication: BREAST CANCER METASTATIC
     Dosage: EVERY TWO WEEKS
     Dates: start: 201601

REACTIONS (1)
  - Neoplasm progression [Unknown]

NARRATIVE: CASE EVENT DATE: 201601
